FAERS Safety Report 7983204-0 (Version None)
Quarter: 2011Q4

REPORT INFORMATION
  Report Type: 
  Country: None (occurrence: None)
  Receive Date: 20111215
  Receipt Date: 20111205
  Transmission Date: 20120403
  Serious: Yes (Hospitalization)
  Sender: FDA-Public Use
  Company Number: IE-MEDIMMUNE-MEDI-0014106

PATIENT
  Sex: Male

DRUGS (4)
  1. ERGOCALCIFEROL [Concomitant]
  2. FERROUS SULFATE TAB [Concomitant]
  3. SYNAGIS [Suspect]
     Route: 030
     Dates: start: 20111101, end: 20111101
  4. SYNAGIS [Suspect]
     Route: 030

REACTIONS (1)
  - BRONCHIOLITIS [None]
